FAERS Safety Report 9293104 (Version 1)
Quarter: 2013Q2

REPORT INFORMATION
  Report Type: Spontaneous
  Country: US (occurrence: None)
  Receive Date: 20130514
  Receipt Date: 20130514
  Transmission Date: 20140414
  Serious: Yes (Hospitalization, Other)
  Sender: FDA-Public Use
  Company Number: 2013AP005166

PATIENT
  Age: 14 Year
  Sex: Male

DRUGS (7)
  1. KETOCONAZOLE [Suspect]
     Indication: DRUG LEVEL BELOW THERAPEUTIC
  2. RIFAMPICIN [Suspect]
     Indication: LATENT TUBERCULOSIS
  3. TACROLIMUS [Suspect]
     Indication: IMMUNOSUPPRESSANT DRUG THERAPY
     Dosage: 4 MG DAILY, 2.64 MG DAILY
  4. ISONIAZID [Concomitant]
  5. MYCOPHENOLATE MOFETIL [Concomitant]
  6. METHYLPREDNISOLONE [Concomitant]
  7. MEROPENEM [Concomitant]

REACTIONS (10)
  - Drug level below therapeutic [None]
  - Drug interaction [None]
  - Electrocardiogram QT prolonged [None]
  - Potentiating drug interaction [None]
  - Renal failure acute [None]
  - Toxicity to various agents [None]
  - Leukocytosis [None]
  - Lung consolidation [None]
  - Pleural effusion [None]
  - Renal tubular necrosis [None]
